FAERS Safety Report 4827445-X (Version None)
Quarter: 2005Q4

REPORT INFORMATION
  Report Type: 
  Country: None (occurrence: None)
  Receive Date: 20051114
  Receipt Date: 20051103
  Transmission Date: 20060501
  Serious: Yes (Hospitalization, Other)
  Sender: FDA-Public Use
  Company Number: 2005AC01778

PATIENT
  Age: 75 Year
  Sex: Female

DRUGS (5)
  1. OMEPRAZOLE [Suspect]
     Indication: PROPHYLAXIS
     Route: 048
     Dates: start: 20040301, end: 20040101
  2. HYDROCLOROTIAZIDE [Concomitant]
     Indication: HYPERTENSION
  3. SIMVASTATINA [Concomitant]
     Indication: HYPERCHOLESTEROLAEMIA
  4. CALCIUM GLUCONATE [Concomitant]
     Indication: OSTEOPOROSIS
  5. VITAMIN D [Concomitant]
     Indication: OSTEOPOROSIS

REACTIONS (8)
  - ANOREXIA [None]
  - DYSGEUSIA [None]
  - DYSURIA [None]
  - NEPHRITIS INTERSTITIAL [None]
  - POLLAKIURIA [None]
  - POLYURIA [None]
  - PRURITUS [None]
  - RASH [None]
